FAERS Safety Report 8512615-X (Version None)
Quarter: 2012Q3

REPORT INFORMATION
  Report Type: 
  Country: None (occurrence: None)
  Receive Date: 20120716
  Receipt Date: 20120706
  Transmission Date: 20120928
  Serious: Yes (Other)
  Sender: FDA-Public Use
  Company Number: US-ASTRAZENECA-2006UW02945

PATIENT
  Age: 74 Year
  Sex: Male
  Weight: 74.8 kg

DRUGS (11)
  1. TOPROL-XL [Concomitant]
     Route: 048
  2. CRESTOR [Suspect]
     Indication: BLOOD TRIGLYCERIDES INCREASED
     Route: 048
     Dates: start: 20050101, end: 20060101
  3. DIAVAN HCT [Concomitant]
  4. NIASPAN [Concomitant]
  5. CRESTOR [Suspect]
     Indication: BLOOD CHOLESTEROL INCREASED
     Route: 048
     Dates: start: 20050101, end: 20060101
  6. CRESTOR [Suspect]
     Route: 048
  7. FLOMAX [Concomitant]
  8. ASPIRIN [Concomitant]
  9. CRESTOR [Suspect]
     Route: 048
  10. PROSCAR [Concomitant]
  11. SUPPLEMENTS [Concomitant]

REACTIONS (7)
  - MYALGIA [None]
  - HOT FLUSH [None]
  - ARTHRALGIA [None]
  - POLYMYALGIA RHEUMATICA [None]
  - BODY HEIGHT DECREASED [None]
  - MUSCLE SPASMS [None]
  - MUSCULOSKELETAL PAIN [None]
